FAERS Safety Report 7240836-5 (Version None)
Quarter: 2011Q1

REPORT INFORMATION
  Report Type: 
  Country: None (occurrence: None)
  Receive Date: 20110124
  Receipt Date: 20110113
  Transmission Date: 20110831
  Serious: Yes (Hospitalization)
  Sender: FDA-Public Use
  Company Number: US-JNJFOC-20110104376

PATIENT
  Age: 50 Year
  Sex: Male

DRUGS (5)
  1. DOXIL [Suspect]
     Indication: MULTIPLE MYELOMA
     Dosage: GIVEN ON DAY 4 OF EACH 21  DAY CYCLE
     Route: 042
  2. VELCADE [Suspect]
     Indication: MULTIPLE MYELOMA
     Dosage: GIVEN ON DAYS 1, 4, 8, AND 11 OF EACH 21 DAY CYCLE
     Route: 042
  3. DEXAMETHASONE [Suspect]
     Indication: MULTIPLE MYELOMA
     Dosage: GIVEN ON DAYS 1, 4, 8 AND 11 OF EACH 21 DAY CYCLE
     Route: 065
  4. ZOMETA [Concomitant]
     Indication: PRODUCT USED FOR UNKNOWN INDICATION
     Route: 065
  5. ACYCLOVIR [Concomitant]
     Indication: ANTIVIRAL PROPHYLAXIS
     Route: 065

REACTIONS (4)
  - DYSPNOEA [None]
  - HYPOXIA [None]
  - LUNG DISORDER [None]
  - PYREXIA [None]
